FAERS Safety Report 9403107 (Version 1)
Quarter: 2013Q3

REPORT INFORMATION
  Report Type: Spontaneous
  Country: US (occurrence: None)
  Receive Date: 20130715
  Receipt Date: 20130715
  Transmission Date: 20140515
  Serious: Yes (Other)
  Sender: FDA-Public Use
  Company Number: None

PATIENT
  Age: 24 Year
  Sex: Female
  Weight: 75.3 kg

DRUGS (1)
  1. METFORMIN ER [Suspect]
     Indication: TYPE 1 DIABETES MELLITUS
     Dosage: 2 BID
     Dates: start: 20120724, end: 20120124

REACTIONS (4)
  - Pruritus [None]
  - Nausea [None]
  - Abdominal pain [None]
  - Abnormal dreams [None]
